FAERS Safety Report 17031284 (Version 1)
Quarter: 2019Q4

REPORT INFORMATION
  Report Type: Spontaneous
  Country: GB (occurrence: GB)
  Receive Date: 20191114
  Receipt Date: 20191114
  Transmission Date: 20200122
  Serious: Yes (Other)
  Sender: FDA-Public Use
  Company Number: GB-PFIZER INC-2019490704

PATIENT
  Sex: Male

DRUGS (2)
  1. ATORVASTATIN CALCIUM. [Suspect]
     Active Substance: ATORVASTATIN CALCIUM
     Indication: PROPHYLAXIS
     Dosage: 80 MG, 1X/DAY; AT NIGHT
     Route: 048
     Dates: end: 20180729
  2. FUSIDIC ACID [Interacting]
     Active Substance: FUSIDIC ACID
     Indication: WOUND INFECTION
     Dosage: UNK
     Route: 048
     Dates: end: 20180728

REACTIONS (6)
  - Rhabdomyolysis [Recovered/Resolved with Sequelae]
  - Chromaturia [Unknown]
  - Labelled drug-drug interaction medication error [Unknown]
  - Myalgia [Unknown]
  - Blood creatinine increased [Unknown]
  - Polymyositis [Unknown]
